FAERS Safety Report 5262361-3 (Version None)
Quarter: 2007Q1

REPORT INFORMATION
  Report Type: 
  Country: None (occurrence: None)
  Receive Date: 20070309
  Receipt Date: 20070309
  Transmission Date: 20070707
  Serious: Yes (Life-Threatening, Hospitalization)
  Sender: FDA-Public Use
  Company Number: None

PATIENT
  Sex: Female

DRUGS (1)
  1. IFOSFAMIDE [Suspect]
     Indication: CHONDROSARCOMA METASTATIC
     Dosage: 2500 MG/M2 QD IV
     Route: 042
     Dates: start: 20061127, end: 20061128

REACTIONS (2)
  - CONVULSION [None]
  - HYPONATRAEMIA [None]
